FAERS Safety Report 21481514 (Version 1)
Quarter: 2022Q4

REPORT INFORMATION
  Report Type: Report from Study
  Country: US (occurrence: US)
  Receive Date: 20221020
  Receipt Date: 20221020
  Transmission Date: 20230113
  Serious: Yes (Other)
  Sender: FDA-Public Use
  Company Number: US-ABBVIE-4165836

PATIENT
  Age: 69 Year
  Sex: Female

DRUGS (5)
  1. HUMIRA [Suspect]
     Active Substance: ADALIMUMAB
     Indication: Psoriatic arthropathy
     Route: 058
  2. HUMIRA [Suspect]
     Active Substance: ADALIMUMAB
     Indication: Rheumatoid arthritis
  3. MODERNA COVID-19 VACCINE [Concomitant]
     Active Substance: ELASOMERAN
     Indication: COVID-19 immunisation
     Dosage: 1IN1 1ST DOSE
     Route: 030
     Dates: start: 20201228, end: 20201228
  4. MODERNA COVID-19 VACCINE [Concomitant]
     Active Substance: ELASOMERAN
     Indication: COVID-19 immunisation
     Dosage: 1IN1 2ND DOS
     Route: 030
     Dates: start: 20210122, end: 20210122
  5. MODERNA COVID-19 VACCINE [Concomitant]
     Active Substance: ELASOMERAN
     Indication: COVID-19 immunisation
     Dosage: 1IN1 BOOSTER DOSE
     Route: 030
     Dates: start: 20210725, end: 20210725

REACTIONS (2)
  - Thyroid operation [Unknown]
  - Dysphonia [Unknown]

NARRATIVE: CASE EVENT DATE: 20210701
